FAERS Safety Report 15944442 (Version 1)
Quarter: 2019Q1

REPORT INFORMATION
  Report Type: Spontaneous
  Country: CN (occurrence: CN)
  Receive Date: 20190211
  Receipt Date: 20190211
  Transmission Date: 20190417
  Serious: Yes (Other)
  Sender: FDA-Public Use
  Company Number: CN-SA-2019SA034013

PATIENT
  Age: 44 Year
  Sex: Male

DRUGS (6)
  1. CAPECITABINE. [Suspect]
     Active Substance: CAPECITABINE
     Indication: ADENOCARCINOMA
     Dosage: 1.5 G, QCY
     Dates: start: 20170810, end: 20170810
  2. CAPECITABINE. [Suspect]
     Active Substance: CAPECITABINE
     Indication: COLON CANCER STAGE 0
     Dosage: 1.5 G, QCY
     Dates: start: 20170209, end: 20170209
  3. OXALIPLATIN. [Suspect]
     Active Substance: OXALIPLATIN
     Dosage: UNK
     Dates: start: 20180112, end: 20180112
  4. CAPECITABINE. [Suspect]
     Active Substance: CAPECITABINE
     Dosage: UNK
     Dates: start: 20180112, end: 20180112
  5. OXALIPLATIN. [Suspect]
     Active Substance: OXALIPLATIN
     Indication: ADENOCARCINOMA
     Dosage: 200 MG, QCY
     Dates: start: 20170810, end: 20170810
  6. OXALIPLATIN. [Suspect]
     Active Substance: OXALIPLATIN
     Indication: COLON CANCER STAGE 0
     Dosage: 200 MG, QCY
     Dates: start: 20170209, end: 20170209

REACTIONS (5)
  - Metastases to pelvis [Recovered/Resolved]
  - Metastases to peritoneum [Recovered/Resolved]
  - Neutropenia [Unknown]
  - Rash [Unknown]
  - Diarrhoea [Unknown]

NARRATIVE: CASE EVENT DATE: 20180103
